FAERS Safety Report 4311998-4 (Version None)
Quarter: 2004Q1

REPORT INFORMATION
  Report Type: 
  Country: None (occurrence: None)
  Receive Date: 20040305
  Receipt Date: 20031030
  Transmission Date: 20041129
  Serious: No
  Sender: FDA-Public Use
  Company Number: US-GLAXOSMITHKLINE-A0432264A

PATIENT
  Sex: Male

DRUGS (2)
  1. ROPINIROLE HYDROCHLORIDE [Suspect]
     Indication: RESTLESS LEGS SYNDROME
     Dosage: .25MG FOUR TIMES PER DAY
     Route: 048
     Dates: start: 20031027
  2. UNSPECIFIED MEDICATIONS [Concomitant]

REACTIONS (1)
  - INSOMNIA [None]
